FAERS Safety Report 10331049 (Version 2)
Quarter: 2014Q3

REPORT INFORMATION
  Report Type: Spontaneous
  Country: GB (occurrence: GB)
  Receive Date: 20140722
  Receipt Date: 20140917
  Transmission Date: 20150326
  Serious: Yes (Death)
  Sender: FDA-Public Use
  Company Number: GB-SA-2014SA095009

PATIENT
  Sex: Male

DRUGS (13)
  1. CEREZYME [Suspect]
     Active Substance: IMIGLUCERASE
     Indication: GAUCHER^S DISEASE
     Dosage: DOSE:10.17 UNIT(S)/KILOGRAM BODYWEIGHT
     Route: 042
     Dates: start: 20050627
  2. CEREZYME [Suspect]
     Active Substance: IMIGLUCERASE
     Indication: GAUCHER^S DISEASE
     Dosage: DOSE:10 UNIT(S)/KILOGRAM BODYWEIGHT
     Route: 042
     Dates: start: 20060227
  3. CEREZYME [Suspect]
     Active Substance: IMIGLUCERASE
     Indication: GAUCHER^S DISEASE
     Dosage: DOSE:11.01 UNIT(S)/KILOGRAM BODYWEIGHT
     Route: 042
     Dates: start: 20090802
  4. CEREZYME [Suspect]
     Active Substance: IMIGLUCERASE
     Indication: GAUCHER^S DISEASE
     Dosage: DOSE:12.31 UNIT(S)/KILOGRAM BODYWEIGHT
     Route: 042
     Dates: start: 20070423
  5. CEREZYME [Suspect]
     Active Substance: IMIGLUCERASE
     Indication: GAUCHER^S DISEASE
     Dosage: DOSE:13.33 UNIT(S)/KILOGRAM BODYWEIGHT
     Route: 042
     Dates: start: 20080930
  6. CEREDASE [Suspect]
     Active Substance: ALGLUCERASE
     Indication: GAUCHER^S DISEASE
     Route: 042
     Dates: start: 19970731
  7. CEREZYME [Suspect]
     Active Substance: IMIGLUCERASE
     Indication: GAUCHER^S DISEASE
     Route: 042
     Dates: start: 20090323
  8. CEREZYME [Suspect]
     Active Substance: IMIGLUCERASE
     Indication: GAUCHER^S DISEASE
     Route: 042
     Dates: start: 19970731
  9. CEREZYME [Suspect]
     Active Substance: IMIGLUCERASE
     Indication: GAUCHER^S DISEASE
     Dosage: DOSE:3.94 UNIT(S)/KILOGRAM BODYWEIGHT
     Route: 042
     Dates: start: 19990811
  10. CEREZYME [Suspect]
     Active Substance: IMIGLUCERASE
     Indication: GAUCHER^S DISEASE
     Dosage: DOSE:7.14 UNIT(S)/KILOGRAM BODYWEIGHT
     Route: 042
     Dates: start: 20011121
  11. CEREZYME [Suspect]
     Active Substance: IMIGLUCERASE
     Indication: GAUCHER^S DISEASE
     Dosage: DOSE:12.8 UNIT(S)/KILOGRAM BODYWEIGHT
     Route: 042
     Dates: start: 20060510
  12. CEREZYME [Suspect]
     Active Substance: IMIGLUCERASE
     Indication: GAUCHER^S DISEASE
     Route: 042
     Dates: start: 20080215
  13. CEREZYME [Suspect]
     Active Substance: IMIGLUCERASE
     Indication: GAUCHER^S DISEASE
     Dosage: DOSE:7.55 UNIT(S)/KILOGRAM BODYWEIGHT
     Route: 042
     Dates: start: 20000505

REACTIONS (1)
  - Lung neoplasm malignant [Fatal]
